FAERS Safety Report 4825370-1 (Version None)
Quarter: 2005Q4

REPORT INFORMATION
  Report Type: 
  Country: None (occurrence: None)
  Receive Date: 20051111
  Receipt Date: 20051103
  Transmission Date: 20060501
  Serious: Yes (Hospitalization)
  Sender: FDA-Public Use
  Company Number: US-ROCHE-423567

PATIENT
  Age: 53 Year
  Sex: Male
  Weight: 60 kg

DRUGS (15)
  1. RIBAVIRIN [Suspect]
     Indication: HEPATITIS C
     Route: 048
     Dates: start: 20050531, end: 20051003
  2. PEG-INTERFERON ALFA 2A (RO 25-8310) [Suspect]
     Indication: HEPATITIS C
     Route: 058
     Dates: start: 20050406, end: 20051009
  3. CELLCEPT [Concomitant]
  4. PROTONIX [Concomitant]
     Dates: start: 20041101
  5. ASPIRIN [Concomitant]
     Dates: start: 20041223
  6. GLYBURIDE [Concomitant]
     Dates: start: 20041223
  7. VICODIN [Concomitant]
     Dates: start: 20041223
  8. INSULIN [Concomitant]
     Dosage: 1 UNIT DAILY AS OF 27 DEC 2004, 6 UNITS DAILY FROM 05 MAR 2005 ONGOING.
     Dates: start: 20041227
  9. MAGNESIUM OXIDE [Concomitant]
     Dates: start: 20050106
  10. FLORINEF ACETATE [Concomitant]
     Dates: start: 20050403
  11. TRAMADOL HCL [Concomitant]
     Dates: start: 20050506
  12. FOLIC ACID [Concomitant]
     Dates: start: 20050820
  13. BACTRIM [Concomitant]
     Dosage: FORM: PILL.
     Dates: start: 20050912
  14. PAXIL [Concomitant]
     Dates: start: 20050919
  15. ATIVAN [Concomitant]
     Dates: start: 20050920

REACTIONS (1)
  - PANCYTOPENIA [None]
